FAERS Safety Report 19136798 (Version 4)
Quarter: 2021Q2

REPORT INFORMATION
  Report Type: Report from Study
  Country: KR (occurrence: KR)
  Receive Date: 20210414
  Receipt Date: 20210528
  Transmission Date: 20210717
  Serious: Yes (Hospitalization)
  Sender: FDA-Public Use
  Company Number: KR-EISAI MEDICAL RESEARCH-EC-2021-090250

PATIENT
  Age: 40 Year
  Sex: Female
  Weight: 53 kg

DRUGS (9)
  1. NIVOLUMAB [Suspect]
     Active Substance: NIVOLUMAB
     Indication: BREAST CANCER
     Route: 042
     Dates: start: 20210224, end: 20210324
  2. IRCODON [Concomitant]
     Active Substance: OXYCODONE HYDROCHLORIDE
     Indication: CANCER PAIN
     Route: 048
     Dates: start: 20210209
  3. TAMIPOOL [Concomitant]
     Active Substance: VITAMINS
     Indication: DECREASED APPETITE
     Dosage: FREQUENCY ? PRN
     Route: 042
     Dates: start: 20210310
  4. ENCOVER [Concomitant]
     Indication: DECREASED APPETITE
     Dosage: FREQUENCY ? PRN
     Route: 048
     Dates: start: 20210303
  5. LYRICA [Concomitant]
     Active Substance: PREGABALIN
     Indication: CANCER PAIN
     Route: 048
     Dates: start: 20210318
  6. TARGIN PR [Concomitant]
     Indication: CANCER PAIN
     Dosage: 10/5 MG
     Route: 048
     Dates: start: 20210209, end: 2021
  7. STOGAR [Concomitant]
     Active Substance: LAFUTIDINE
     Indication: GASTRITIS
     Route: 048
     Dates: start: 20210303
  8. ERIBULIN [Suspect]
     Active Substance: ERIBULIN
     Indication: BREAST CANCER
     Route: 042
     Dates: start: 20210224, end: 20210324
  9. TARGIN PR [Concomitant]
     Dosage: 40/20 MG
     Route: 048
     Dates: start: 20210318

REACTIONS (1)
  - Adrenal insufficiency [Recovered/Resolved]

NARRATIVE: CASE EVENT DATE: 20210326
